FAERS Safety Report 21679216 (Version 1)
Quarter: 2022Q4

REPORT INFORMATION
  Report Type: Spontaneous
  Country: CA (occurrence: CA)
  Receive Date: 20221205
  Receipt Date: 20221205
  Transmission Date: 20230112
  Serious: Yes (Other)
  Sender: FDA-Public Use
  Company Number: CA-JNJFOC-20221205142

PATIENT
  Age: 76 Year
  Sex: Female
  Weight: 41 kg

DRUGS (16)
  1. REMICADE [Suspect]
     Active Substance: INFLIXIMAB
     Indication: Crohn^s disease
     Route: 041
  2. PROLIA [Concomitant]
     Active Substance: DENOSUMAB
     Route: 058
  3. BISOPROLOL [Concomitant]
     Active Substance: BISOPROLOL
  4. BISOPROLOL [Concomitant]
     Active Substance: BISOPROLOL
  5. CYANOCOBALAMIN [Concomitant]
     Active Substance: CYANOCOBALAMIN
     Dosage: 1000 MCG
     Route: 048
  6. ENTOCORT [Concomitant]
     Active Substance: BUDESONIDE
     Indication: Crohn^s disease
  7. ERGOCALCIFEROL [Concomitant]
     Active Substance: ERGOCALCIFEROL
  8. EDOXABAN TOSYLATE [Concomitant]
     Active Substance: EDOXABAN TOSYLATE
  9. MAGNESIUM [Concomitant]
     Active Substance: MAGNESIUM
     Indication: Mineral supplementation
  10. PANTOPRAZOLE [Concomitant]
     Active Substance: PANTOPRAZOLE
  11. PERINDOPRIL [Concomitant]
     Active Substance: PERINDOPRIL
  12. POTASSIUM [Concomitant]
     Active Substance: POTASSIUM
  13. POTASSIUM [Concomitant]
     Active Substance: POTASSIUM
  14. PREDNISONE [Concomitant]
     Active Substance: PREDNISONE
  15. TAMOXIFEN [Concomitant]
     Active Substance: TAMOXIFEN
  16. VITAMIN D3 [Concomitant]
     Active Substance: CHOLECALCIFEROL

REACTIONS (11)
  - Decreased appetite [Not Recovered/Not Resolved]
  - Dysphagia [Not Recovered/Not Resolved]
  - Gingival disorder [Not Recovered/Not Resolved]
  - Oral disorder [Not Recovered/Not Resolved]
  - Oropharyngeal pain [Not Recovered/Not Resolved]
  - Secretion discharge [Not Recovered/Not Resolved]
  - Oral candidiasis [Not Recovered/Not Resolved]
  - COVID-19 [Not Recovered/Not Resolved]
  - Pain [Not Recovered/Not Resolved]
  - Condition aggravated [Not Recovered/Not Resolved]
  - Off label use [Not Recovered/Not Resolved]
